FAERS Safety Report 4469256-3 (Version None)
Quarter: 2004Q4

REPORT INFORMATION
  Report Type: 
  Country: None (occurrence: None)
  Receive Date: 20041005
  Receipt Date: 20040921
  Transmission Date: 20050328
  Serious: Yes (Life-Threatening, Hospitalization)
  Sender: FDA-Public Use
  Company Number: FABR-10792

PATIENT
  Age: 39 Year
  Sex: Male

DRUGS (1)
  1. FABRAZYME [Suspect]
     Indication: FABRY'S DISEASE

REACTIONS (7)
  - ANOXIC ENCEPHALOPATHY [None]
  - CARDIAC ARREST [None]
  - CARDIOMEGALY [None]
  - CIRCULATORY COLLAPSE [None]
  - COMA [None]
  - IMPAIRED GASTRIC EMPTYING [None]
  - VENTRICULAR FIBRILLATION [None]
